FAERS Safety Report 9835918 (Version 6)
Quarter: 2014Q1

REPORT INFORMATION
  Report Type: Spontaneous
  Country: TR (occurrence: TR)
  Receive Date: 20140122
  Receipt Date: 20140312
  Transmission Date: 20141002
  Serious: Yes (Other)
  Sender: FDA-Public Use
  Company Number: TR-PFIZER INC-2014016567

PATIENT
  Age: 57 Year
  Sex: Male

DRUGS (10)
  1. CHAMPIX [Suspect]
     Indication: SMOKING CESSATION THERAPY
     Dosage: UNK
  2. KARVEZIDE [Concomitant]
     Indication: HYPERTENSION
     Dosage: HYDROCHLOROTHIAZIDE: 150 MG/ IRBESARTAN: 12.5 MG, 1X/DAY
  3. VASTAREL ^SERVIER^ [Concomitant]
     Dosage: 35 MG, 2X/DAY
  4. NOOTROPIL [Concomitant]
     Dosage: 800 MG, 2X/DAY
  5. CORASPIN [Concomitant]
     Dosage: 100 MG, 1X/DAY
  6. NOVONORM [Concomitant]
     Indication: DIABETES MELLITUS
     Dosage: 2 MG, 2X/DAY
  7. DIAFORMIN [Concomitant]
     Indication: DIABETES MELLITUS
     Dosage: 1000 MG, 2X/DAY
  8. BETANORM [Concomitant]
     Indication: DIABETES MELLITUS
     Dosage: UNK, AS NEEDED
  9. TRAVATAN [Concomitant]
     Indication: GLAUCOMA
     Dosage: 1 GTT, 1X/DAY
  10. NORVASC [Concomitant]
     Indication: HYPERTENSION
     Dosage: 5 MG, UNK

REACTIONS (8)
  - Cardiac hypertrophy [Unknown]
  - Hypertension [Not Recovered/Not Resolved]
  - Visual impairment [Recovered/Resolved]
  - Renal disorder [Unknown]
  - Dysuria [Unknown]
  - Fluid retention [Unknown]
  - Panic attack [Not Recovered/Not Resolved]
  - Palpitations [Not Recovered/Not Resolved]
